FAERS Safety Report 19959630 (Version 4)
Quarter: 2022Q4

REPORT INFORMATION
  Report Type: Spontaneous
  Country: TH (occurrence: TH)
  Receive Date: 20211015
  Receipt Date: 20221212
  Transmission Date: 20230113
  Serious: Yes (Hospitalization, Other)
  Sender: FDA-Public Use
  Company Number: TH-BOEHRINGERINGELHEIM-2021-BI-131469

PATIENT
  Age: 84 Year
  Sex: Male
  Weight: 80 kg

DRUGS (12)
  1. OLODATEROL\TIOTROPIUM [Suspect]
     Active Substance: OLODATEROL\TIOTROPIUM
     Indication: Chronic obstructive pulmonary disease
     Dosage: TIOTROPIUM/OLODATEROL 2 PUFF OD
     Route: 055
     Dates: start: 20200923
  2. FLUTICASONE PROPIONATE\SALMETEROL XINAFOATE [Suspect]
     Active Substance: FLUTICASONE PROPIONATE\SALMETEROL XINAFOATE
     Indication: Chronic obstructive pulmonary disease
     Dosage: SALMETEROL/FLUTICASONE (25/250) 2 PUFF Q 12 HR?DRUG END: --2018
     Dates: start: 20180314
  3. FLUTICASONE PROPIONATE\SALMETEROL XINAFOATE [Suspect]
     Active Substance: FLUTICASONE PROPIONATE\SALMETEROL XINAFOATE
     Dosage: SALMETEROL/FLUTICASONE (25/250) 1 PUFF Q 12 HR
     Dates: start: 2018, end: 20200729
  4. FLUTICASONE PROPIONATE\SALMETEROL XINAFOATE [Suspect]
     Active Substance: FLUTICASONE PROPIONATE\SALMETEROL XINAFOATE
     Dosage: SALMETEROL/FLUTICASONE PROPIONATE (25/250) 2 PUFF Q 12 HR
     Dates: start: 20200729, end: 20200906
  5. FLUTICASONE PROPIONATE\SALMETEROL XINAFOATE [Suspect]
     Active Substance: FLUTICASONE PROPIONATE\SALMETEROL XINAFOATE
     Dosage: SALMETEROL/FLUTICASONE PROPIONATE 1 PUFF Q 12 HR
     Dates: start: 20200906, end: 20210319
  6. FLUTICASONE PROPIONATE\SALMETEROL XINAFOATE [Suspect]
     Active Substance: FLUTICASONE PROPIONATE\SALMETEROL XINAFOATE
     Dosage: SALMETEROL/FLUTICASONE PROPIONATE 2 PUFF Q 12 HR
     Dates: start: 20210319
  7. THEOPHYLLINE [Concomitant]
     Active Substance: THEOPHYLLINE
     Indication: Chronic obstructive pulmonary disease
     Dosage: 0.5 TAB TWICE DAILY
     Route: 048
     Dates: start: 20180314, end: 20210319
  8. THEOPHYLLINE [Concomitant]
     Active Substance: THEOPHYLLINE
     Dosage: 1 TAB  BID
     Route: 048
     Dates: start: 20210319
  9. FELODIPINE [Concomitant]
     Active Substance: FELODIPINE
     Indication: Hypertension
  10. HYDROCHLOROTHIAZIDE [Concomitant]
     Active Substance: HYDROCHLOROTHIAZIDE
     Indication: Hypertension
     Dosage: 0.5 TAB OD
  11. LOSARTAN [Concomitant]
     Active Substance: LOSARTAN
     Indication: Hypertension
  12. SIMVASTATIN [Concomitant]
     Active Substance: SIMVASTATIN
     Indication: Dyslipidaemia

REACTIONS (8)
  - Chronic obstructive pulmonary disease [Recovered/Resolved]
  - Chronic obstructive pulmonary disease [Recovered/Resolved]
  - Chronic obstructive pulmonary disease [Recovered/Resolved]
  - Pulmonary hypertension [Unknown]
  - Chronic obstructive pulmonary disease [Recovered/Resolved]
  - Chronic obstructive pulmonary disease [Recovered/Resolved]
  - Pyrexia [Recovered/Resolved]
  - Productive cough [Unknown]

NARRATIVE: CASE EVENT DATE: 20201121
